FAERS Safety Report 21650612 (Version 1)
Quarter: 2022Q4

REPORT INFORMATION
  Report Type: Spontaneous
  Country: US (occurrence: None)
  Receive Date: 20221124
  Receipt Date: 20221124
  Transmission Date: 20230113
  Serious: Yes (Other)
  Sender: FDA-Public Use
  Company Number: None

PATIENT
  Age: 61 Year
  Sex: Female
  Weight: 49.9 kg

DRUGS (1)
  1. XEOMIN [Suspect]
     Active Substance: INCOBOTULINUMTOXINA
     Indication: Muscle spasticity
     Dosage: 400  TOT -TOTAL  ONE INTRAMUSCULAR ?
     Route: 030
     Dates: start: 20221107, end: 20221107

REACTIONS (4)
  - Rash [None]
  - Dermatitis allergic [None]
  - Skin exfoliation [None]
  - Post procedural complication [None]

NARRATIVE: CASE EVENT DATE: 20221107
